FAERS Safety Report 22006759 (Version 1)
Quarter: 2023Q1

REPORT INFORMATION
  Report Type: Spontaneous
  Country: None (occurrence: IT)
  Receive Date: 20230217
  Receipt Date: 20230217
  Transmission Date: 20230418
  Serious: Yes (Other)
  Sender: FDA-Public Use
  Company Number: IT-Hill Dermaceuticals, Inc.-2138102

PATIENT
  Age: 78 Year
  Sex: Male

DRUGS (2)
  1. TOLAK [Suspect]
     Active Substance: FLUOROURACIL
     Indication: Actinic keratosis
     Route: 061
     Dates: start: 20230112, end: 20230131
  2. FLURBIPROFEN [Concomitant]
     Active Substance: FLURBIPROFEN
     Route: 065
     Dates: start: 20230131, end: 20230131

REACTIONS (6)
  - Anaphylactic shock [Unknown]
  - Lymphadenopathy [Unknown]
  - Hypersensitivity [Unknown]
  - Inflammation [Unknown]
  - Overdose [None]
  - Suspected product quality issue [None]

NARRATIVE: CASE EVENT DATE: 20230112
